FAERS Safety Report 8177241-3 (Version None)
Quarter: 2012Q1

REPORT INFORMATION
  Report Type: 
  Country: None (occurrence: None)
  Receive Date: 20120301
  Receipt Date: 20120220
  Transmission Date: 20120608
  Serious: Yes (Death, Other)
  Sender: FDA-Public Use
  Company Number: CZ-BRISTOL-MYERS SQUIBB COMPANY-16407520

PATIENT
  Age: 49 Year
  Sex: Female

DRUGS (6)
  1. CARBOPLATIN [Suspect]
     Indication: OVARIAN EPITHELIAL CANCER
     Dosage: 1DF:AUC 6 ALSO TAKEN UNTIL FEB2006
  2. GEMCITABINE [Suspect]
     Dosage: 1 G/M2
     Dates: start: 20061101
  3. CISPLATIN [Suspect]
     Dates: start: 20061101
  4. TAMOXIFEN CITRATE [Suspect]
     Dates: start: 20061101
  5. PACLITAXEL [Suspect]
     Indication: OVARIAN EPITHELIAL CANCER
     Dosage: CYCLES:17 ALSO TAKEN UNTIL FEB2006
  6. DOXORUBICIN HCL [Suspect]
     Indication: OVARIAN EPITHELIAL CANCER

REACTIONS (4)
  - MYELODYSPLASTIC SYNDROME [None]
  - NECROTISING COLITIS [None]
  - PNEUMONIA [None]
  - OVARIAN EPITHELIAL CANCER [None]
